FAERS Safety Report 8024371 (Version 3)
Quarter: 2013Q1

REPORT INFORMATION
  Report Type: Report from Study
  Country: FI (occurrence: FI)
  Receive Date: 20110707
  Receipt Date: 20130325
  Transmission Date: 20140127
  Serious: Yes (Hospitalization)
  Sender: FDA-Public Use
  Company Number: FI-BIOGENIDEC-2011BI024050

PATIENT
  Age: 48 Year
  Sex: Female

DRUGS (13)
  1. TYSABRI [Suspect]
     Indication: RELAPSING-REMITTING MULTIPLE SCLEROSIS
     Route: 042
     Dates: start: 20101027
  2. FUROSEMID [Concomitant]
  3. FLUVASTATIN [Concomitant]
  4. PANTESTON [Concomitant]
  5. ESTRADIOL [Concomitant]
  6. ESTRADIOL [Concomitant]
  7. THYROXIN [Concomitant]
  8. NITROFURANTOIN [Concomitant]
  9. BACLOFEN [Concomitant]
  10. KLONATSEPAM [Concomitant]
  11. AMANTADIN [Concomitant]
  12. CITALOPRAM [Concomitant]
  13. TEMATSEPAM [Concomitant]

REACTIONS (1)
  - Enterovesical fistula [Recovered/Resolved]
